FAERS Safety Report 25445613 (Version 2)
Quarter: 2025Q2

REPORT INFORMATION
  Report Type: Spontaneous
  Country: IN (occurrence: IN)
  Receive Date: 20250617
  Receipt Date: 20250630
  Transmission Date: 20250716
  Serious: No
  Sender: MYLAN
  Company Number: IN-MYLANLABS-2025M1049961

PATIENT
  Age: 7 Decade
  Sex: Female

DRUGS (1)
  1. EPINEPHRINE [Suspect]
     Active Substance: EPINEPHRINE
     Indication: Mallory-Weiss syndrome

REACTIONS (1)
  - No adverse event [Unknown]
